FAERS Safety Report 7286059-5 (Version None)
Quarter: 2011Q1

REPORT INFORMATION
  Report Type: 
  Country: None (occurrence: None)
  Receive Date: 20110210
  Receipt Date: 20110203
  Transmission Date: 20110831
  Serious: Yes (Life-Threatening, Hospitalization)
  Sender: FDA-Public Use
  Company Number: DE-ELI_LILLY_AND_COMPANY-DE201101002607

PATIENT
  Age: 25 Year
  Sex: Male

DRUGS (13)
  1. QUETIAPINE [Concomitant]
  2. CLOZAPINE [Concomitant]
     Dosage: 50 MG, 2/D
     Dates: start: 20110101
  3. CLOZAPINE [Concomitant]
     Dosage: 300 MG, UNK
  4. ARIPIPRAZOLE [Concomitant]
     Dosage: 10 MG, UNK
     Dates: start: 20101102
  5. AKINETON [Concomitant]
  6. ZYPREXA [Suspect]
     Indication: SCHIZOPHRENIA, PARANOID TYPE
     Dosage: 20 MG, DAILY (1/D)
     Dates: start: 20101018, end: 20101108
  7. TAVOR [Concomitant]
     Dosage: 10 MG, UNK
  8. TAVOR [Concomitant]
     Dosage: 3 MG, 3/D
  9. HALDOL [Concomitant]
  10. ZYPREXA [Suspect]
     Dosage: 20 MG, DAILY (1/D)
     Dates: start: 20101210, end: 20101214
  11. MOVICOL [Concomitant]
     Dosage: 2 D/F, UNK
  12. PANTOPRAZOLE [Concomitant]
     Dosage: 20 MG, UNK
  13. VALPROIC ACID [Concomitant]
     Dosage: 300 MG, UNK

REACTIONS (10)
  - SEDATION [None]
  - WEIGHT INCREASED [None]
  - SCHIZOPHRENIA, CATATONIC TYPE [None]
  - PYREXIA [None]
  - FEELING ABNORMAL [None]
  - DYSPHAGIA [None]
  - CONSTIPATION [None]
  - FATIGUE [None]
  - BLOOD CREATINE PHOSPHOKINASE INCREASED [None]
  - VISION BLURRED [None]
